FAERS Safety Report 20937603 (Version 1)
Quarter: 2022Q2

REPORT INFORMATION
  Report Type: Spontaneous
  Country: US (occurrence: US)
  Receive Date: 20220609
  Receipt Date: 20220609
  Transmission Date: 20220721
  Serious: No
  Sender: FDA-Public Use
  Company Number: US-ORGANON-O2206USA000507

PATIENT
  Age: 23 Year
  Sex: Female
  Weight: 95.238 kg

DRUGS (2)
  1. NEXPLANON [Suspect]
     Active Substance: ETONOGESTREL
     Indication: Contraception
     Dosage: 1 IMPLANT, RIGHT ARM
     Route: 059
  2. SPIRONOLACTONE [Concomitant]
     Active Substance: SPIRONOLACTONE
     Dosage: UNK

REACTIONS (2)
  - Device kink [Not Recovered/Not Resolved]
  - Medical device site discomfort [Not Recovered/Not Resolved]

NARRATIVE: CASE EVENT DATE: 20220526
